FAERS Safety Report 4595381-2 (Version None)
Quarter: 2005Q1

REPORT INFORMATION
  Report Type: 
  Country: None (occurrence: None)
  Receive Date: 20050225
  Receipt Date: 20050225
  Transmission Date: 20050727
  Serious: Yes (Hospitalization, Other)
  Sender: FDA-Public Use
  Company Number: None

PATIENT
  Age: 76 Year
  Sex: Female
  Weight: 68.9467 kg

DRUGS (7)
  1. ZELNORM [Suspect]
     Indication: CONSTIPATION
     Dosage: 6 MG QD ORAL
     Route: 048
     Dates: start: 20040601, end: 20050101
  2. HYPERCHOLESTOROLEMIA [Concomitant]
  3. COPD [Concomitant]
  4. HYPERTENSION [Concomitant]
  5. PSEUDOGOUT [Concomitant]
  6. GASTRITIS [Concomitant]
  7. RESTLESS LEG SYNDROME [Concomitant]

REACTIONS (12)
  - ABDOMINAL PAIN [None]
  - ANOREXIA [None]
  - BACK PAIN [None]
  - CHOLECYSTECTOMY [None]
  - HAEMATOCHEZIA [None]
  - LEUKOCYTOSIS [None]
  - LIVER FUNCTION TEST ABNORMAL [None]
  - MUSCLE SPASMS [None]
  - NAUSEA [None]
  - PYREXIA [None]
  - VOMITING [None]
  - WEIGHT DECREASED [None]
